FAERS Safety Report 10049343 (Version 1)
Quarter: 2014Q2

REPORT INFORMATION
  Report Type: Report from Study
  Country: US (occurrence: US)
  Receive Date: 20140401
  Receipt Date: 20140401
  Transmission Date: 20141212
  Serious: Yes (Other)
  Sender: FDA-Public Use
  Company Number: US-ROCHE-1371016

PATIENT
  Age: 12 Year
  Sex: Male
  Weight: 49.71 kg

DRUGS (2)
  1. NUTROPIN AQ [Suspect]
     Indication: GROWTH HORMONE DEFICIENCY
     Dosage: MWF
     Route: 058
  2. NUTROPIN AQ [Suspect]
     Dosage: TTHSAT
     Route: 058

REACTIONS (1)
  - Vitamin D decreased [Unknown]
